FAERS Safety Report 7737278-2 (Version None)
Quarter: 2011Q3

REPORT INFORMATION
  Report Type: 
  Country: None (occurrence: None)
  Receive Date: 20110902
  Receipt Date: 20110817
  Transmission Date: 20111222
  Serious: No
  Sender: FDA-Public Use
  Company Number: THQ2011A04971

PATIENT
  Age: 71 Year
  Sex: Male

DRUGS (6)
  1. RAMIPRIL [Concomitant]
  2. ACTOS [Suspect]
     Indication: DIABETES MELLITUS
     Dosage: 45 MG (1 D) PER ORAL
     Route: 048
     Dates: start: 20040316, end: 20110805
  3. ACTOS [Suspect]
     Indication: HYPOGLYCAEMIA
     Dosage: 45 MG (1 D) PER ORAL
     Route: 048
     Dates: start: 20040316, end: 20110805
  4. LIPITOR [Concomitant]
  5. ASPIRIN [Concomitant]
  6. GLYADE (GLICLAZIDE) [Concomitant]

REACTIONS (2)
  - LUNG NEOPLASM MALIGNANT [None]
  - BLADDER TRANSITIONAL CELL CARCINOMA [None]
